FAERS Safety Report 25181302 (Version 1)
Quarter: 2025Q2

REPORT INFORMATION
  Report Type: Spontaneous
  Country: IN (occurrence: IN)
  Receive Date: 20250410
  Receipt Date: 20250410
  Transmission Date: 20250717
  Serious: Yes (Life-Threatening, Hospitalization, Other)
  Sender: SUNNY PHARMTECH INC.
  Company Number: IN-Sunny Pharmtech Inc.-000002

PATIENT
  Age: 61 Year
  Sex: Female

DRUGS (2)
  1. CYCLOPHOSPHAMIDE [Suspect]
     Active Substance: CYCLOPHOSPHAMIDE
     Indication: Sjogren^s syndrome
  2. MESNA [Concomitant]
     Active Substance: MESNA
     Route: 042

REACTIONS (3)
  - Enterocolitis haemorrhagic [Recovered/Resolved]
  - Acute kidney injury [Recovered/Resolved]
  - Shock [Recovered/Resolved]
